FAERS Safety Report 9645254 (Version 1)
Quarter: 2013Q4

REPORT INFORMATION
  Report Type: Spontaneous
  Country: FR (occurrence: FR)
  Receive Date: 20131025
  Receipt Date: 20131025
  Transmission Date: 20140711
  Serious: Yes (Hospitalization)
  Sender: FDA-Public Use
  Company Number: FR-ROCHE-1293857

PATIENT
  Age: 72 Year
  Sex: Female

DRUGS (4)
  1. MABTHERA [Suspect]
     Indication: RHEUMATOID ARTHRITIS
     Route: 041
     Dates: start: 20130801
  2. MABTHERA [Suspect]
     Route: 041
     Dates: start: 20130814
  3. ATACAND [Concomitant]
  4. SOTALEX [Concomitant]

REACTIONS (2)
  - Cardiac failure [Recovered/Resolved]
  - Acute pulmonary oedema [Recovered/Resolved]
